FAERS Safety Report 10056506 (Version 2)
Quarter: 2014Q2

REPORT INFORMATION
  Report Type: Report from Study
  Country: US (occurrence: US)
  Receive Date: 20140403
  Receipt Date: 20140403
  Transmission Date: 20141212
  Serious: Yes (Death, Life-Threatening, Hospitalization)
  Sender: FDA-Public Use
  Company Number: US-PFIZER INC-2014054230

PATIENT
  Age: 69 Year
  Sex: Male
  Weight: 96.2 kg

DRUGS (18)
  1. BLINDED CELECOXIB [Suspect]
     Indication: OSTEOARTHRITIS
     Dosage: BLINDED THERAPY, TID
     Route: 048
     Dates: start: 20120214, end: 20131022
  2. BLINDED IBUPROFEN [Suspect]
     Indication: OSTEOARTHRITIS
     Dosage: BLINDED THERAPY, TID
     Route: 048
     Dates: start: 20120214, end: 20131022
  3. BLINDED IBUPROFEN [Suspect]
     Indication: OSTEOARTHRITIS
     Dosage: BLINDED THERAPY, TID
     Route: 048
     Dates: start: 20120214, end: 20131022
  4. BLINDED IBUPROFEN [Suspect]
     Indication: OSTEOARTHRITIS
     Dosage: BLINDED THERAPY, TID
     Route: 048
     Dates: start: 20120214, end: 20131022
  5. BLINDED NAPROXEN [Suspect]
     Indication: OSTEOARTHRITIS
     Dosage: BLINDED THERAPY, TID
     Route: 048
     Dates: start: 20120214, end: 20131022
  6. BLINDED NAPROXEN [Suspect]
     Indication: OSTEOARTHRITIS
     Dosage: BLINDED THERAPY, TID
     Route: 048
     Dates: start: 20120214, end: 20131022
  7. BLINDED NAPROXEN [Suspect]
     Indication: OSTEOARTHRITIS
     Dosage: BLINDED THERAPY, TID
     Route: 048
     Dates: start: 20120214, end: 20131022
  8. BLINDED PLACEBO [Suspect]
     Indication: OSTEOARTHRITIS
     Dosage: BLINDED THERAPY, TID
     Route: 048
     Dates: start: 20120214, end: 20131022
  9. BLINDED CELECOXIB [Suspect]
     Indication: RHEUMATOID ARTHRITIS
  10. BLINDED IBUPROFEN [Suspect]
     Indication: RHEUMATOID ARTHRITIS
  11. BLINDED IBUPROFEN [Suspect]
     Indication: RHEUMATOID ARTHRITIS
  12. BLINDED IBUPROFEN [Suspect]
     Indication: RHEUMATOID ARTHRITIS
  13. BLINDED NAPROXEN [Suspect]
     Indication: RHEUMATOID ARTHRITIS
  14. BLINDED NAPROXEN [Suspect]
     Indication: RHEUMATOID ARTHRITIS
  15. BLINDED NAPROXEN [Suspect]
     Indication: RHEUMATOID ARTHRITIS
  16. BLINDED PLACEBO [Suspect]
     Indication: RHEUMATOID ARTHRITIS
  17. VIAGRA [Suspect]
     Indication: ERECTILE DYSFUNCTION
     Dosage: 100 MG, AS NEEDED
     Route: 048
     Dates: start: 2005
  18. NEXIUM [Concomitant]
     Indication: PROPHYLAXIS
     Dosage: MG, QD
     Route: 048
     Dates: start: 20120214, end: 20131022

REACTIONS (1)
  - Cardiac arrest [Fatal]
